FAERS Safety Report 11174827 (Version 1)
Quarter: 2015Q2

REPORT INFORMATION
  Report Type: Report from Study
  Country: DE (occurrence: DE)
  Receive Date: 20150609
  Receipt Date: 20150609
  Transmission Date: 20150821
  Serious: Yes (Hospitalization, Other)
  Sender: FDA-Public Use
  Company Number: DE-CELGENE-062-21880-13084000

PATIENT
  Age: 53 Year
  Sex: Male
  Weight: 99 kg

DRUGS (13)
  1. LEVOTHYROXIN [Concomitant]
     Active Substance: LEVOTHYROXINE
     Indication: HYPOTHYROIDISM
     Dosage: 100 MICROGRAM
     Route: 048
     Dates: start: 1992
  2. SALOFALK [Concomitant]
     Active Substance: MESALAMINE
     Indication: COLITIS ULCERATIVE
     Route: 048
     Dates: start: 201209
  3. REVLIMID [Suspect]
     Active Substance: LENALIDOMIDE
     Indication: 5Q MINUS SYNDROME
     Route: 048
     Dates: start: 20120804
  4. PHENPROCOUMON [Concomitant]
     Active Substance: PHENPROCOUMON
     Indication: THROMBOSIS PROPHYLAXIS
     Route: 048
     Dates: start: 20130808
  5. BISOPROLOL [Concomitant]
     Active Substance: BISOPROLOL
     Indication: HYPERTENSION
     Dosage: 10 MILLIGRAM
     Route: 048
     Dates: start: 2002
  6. PREDNISOLONE. [Concomitant]
     Active Substance: PREDNISOLONE
     Indication: COLITIS ULCERATIVE
     Dosage: 20 MILLIGRAM
     Route: 048
     Dates: start: 201209
  7. REVLIMID [Suspect]
     Active Substance: LENALIDOMIDE
     Route: 048
  8. PANTOPRAZOLE [Concomitant]
     Active Substance: PANTOPRAZOLE SODIUM
     Indication: PROPHYLAXIS
     Dosage: 40 MILLIGRAM
     Route: 048
  9. MESALAZIN [Concomitant]
     Active Substance: MESALAMINE
     Indication: COLITIS ULCERATIVE
     Dosage: 1 GRAM
     Route: 048
     Dates: start: 1989
  10. MICARDIS PLUS [Concomitant]
     Active Substance: HYDROCHLOROTHIAZIDE\TELMISARTAN
     Indication: HYPERTENSION
     Dosage: 40/125
     Route: 048
     Dates: start: 2002
  11. PHENPROCOUMON [Concomitant]
     Active Substance: PHENPROCOUMON
     Route: 048
     Dates: start: 201209
  12. PREDNISON [Concomitant]
     Active Substance: PREDNISONE
     Indication: COLITIS ULCERATIVE
     Route: 048
     Dates: start: 20130524
  13. AMIODARONE [Concomitant]
     Active Substance: AMIODARONE
     Indication: SUPRAVENTRICULAR TACHYCARDIA
     Route: 048
     Dates: start: 20130816

REACTIONS (2)
  - Atrial flutter [Recovered/Resolved]
  - Myelodysplastic syndrome [Not Recovered/Not Resolved]

NARRATIVE: CASE EVENT DATE: 20130806
